FAERS Safety Report 13735294 (Version 1)
Quarter: 2017Q3

REPORT INFORMATION
  Report Type: Spontaneous
  Country: US (occurrence: US)
  Receive Date: 20170707
  Receipt Date: 20170707
  Transmission Date: 20171127
  Serious: Yes (Life-Threatening, Hospitalization)
  Sender: FDA-Public Use
  Company Number: None

PATIENT
  Age: 67 Year
  Sex: Male
  Weight: 122.3 kg

DRUGS (1)
  1. HEPARIN SODIUM INJECTION 10,000 UNITS / 10 ML [Suspect]
     Active Substance: HEPARIN SODIUM
     Indication: ANTICOAGULANT THERAPY
     Dosage: ?          OTHER DOSE:UNK;OTHER FREQUENCY:ONCE;?
     Route: 040
     Dates: start: 20170706, end: 20170706

REACTIONS (2)
  - Blood pressure decreased [None]
  - Product contamination microbial [None]

NARRATIVE: CASE EVENT DATE: 20170706
